FAERS Safety Report 16653188 (Version 1)
Quarter: 2019Q3

REPORT INFORMATION
  Report Type: Spontaneous
  Country: US (occurrence: US)
  Receive Date: 20190731
  Receipt Date: 20190731
  Transmission Date: 20191004
  Serious: Yes (Other)
  Sender: FDA-Public Use
  Company Number: US-OTSUKA-2019_027826

PATIENT
  Sex: Female

DRUGS (1)
  1. REXULTI [Suspect]
     Active Substance: BREXPIPRAZOLE
     Indication: BIPOLAR DISORDER
     Dosage: 1 MG, QD
     Route: 065

REACTIONS (7)
  - Product use in unapproved indication [Unknown]
  - Impaired healing [Not Recovered/Not Resolved]
  - Treatment noncompliance [Unknown]
  - Gait disturbance [Unknown]
  - Post procedural swelling [Not Recovered/Not Resolved]
  - Foot deformity [Unknown]
  - Condition aggravated [Unknown]

NARRATIVE: CASE EVENT DATE: 2019
